FAERS Safety Report 7807980-2 (Version None)
Quarter: 2011Q4

REPORT INFORMATION
  Report Type: 
  Country: None (occurrence: None)
  Receive Date: 20111011
  Receipt Date: 20111011
  Transmission Date: 20120403
  Serious: Yes (Other)
  Sender: FDA-Public Use
  Company Number: None

PATIENT
  Age: 52 Year
  Sex: Female
  Weight: 68.038 kg

DRUGS (1)
  1. OXYCONTIN [Suspect]
     Indication: SURGERY
     Dosage: OXYCONTIN 20MG
     Route: 048
     Dates: start: 20020101, end: 20111006

REACTIONS (7)
  - BACK PAIN [None]
  - PAIN [None]
  - MOBILITY DECREASED [None]
  - EXERCISE LACK OF [None]
  - NERVE INJURY [None]
  - PRURITUS [None]
  - NECK PAIN [None]
